FAERS Safety Report 7021874-4 (Version None)
Quarter: 2010Q3

REPORT INFORMATION
  Report Type: 
  Country: None (occurrence: None)
  Receive Date: 20100930
  Receipt Date: 20100920
  Transmission Date: 20110219
  Serious: Yes (Hospitalization)
  Sender: FDA-Public Use
  Company Number: US-CELGENEUS-163-21880-10062422

PATIENT
  Sex: Male

DRUGS (6)
  1. REVLIMID [Suspect]
     Indication: MULTIPLE MYELOMA
     Route: 048
     Dates: start: 20100401
  2. REVLIMID [Suspect]
     Route: 048
     Dates: start: 20061001
  3. REVLIMID [Suspect]
     Route: 048
     Dates: start: 20061201
  4. REVLIMID [Suspect]
     Route: 048
     Dates: start: 20070101
  5. COUMADIN [Concomitant]
     Indication: ANTICOAGULANT THERAPY
     Route: 065
  6. SINEMET [Concomitant]
     Indication: PARKINSON'S DISEASE
     Dosage: 25/100, 1/2
     Route: 065
     Dates: start: 20100401

REACTIONS (1)
  - CHEST PAIN [None]
